FAERS Safety Report 23900264 (Version 1)
Quarter: 2024Q2

REPORT INFORMATION
  Report Type: Spontaneous
  Country: US (occurrence: None)
  Receive Date: 20240526
  Receipt Date: 20240526
  Transmission Date: 20240716
  Serious: No
  Sender: FDA-Public Use
  Company Number: US-ROCHE-3231886

PATIENT

DRUGS (2)
  1. OCREVUS [Suspect]
     Active Substance: OCRELIZUMAB
     Indication: Multiple sclerosis
     Route: 065
     Dates: start: 201207, end: 202002
  2. KESIMPTA [Concomitant]
     Active Substance: OFATUMUMAB

REACTIONS (6)
  - Nausea [Unknown]
  - Flushing [Unknown]
  - Headache [Unknown]
  - Insomnia [Unknown]
  - Weight decreased [Unknown]
  - Weight fluctuation [Unknown]
